FAERS Safety Report 4560232-9 (Version None)
Quarter: 2005Q1

REPORT INFORMATION
  Report Type: 
  Country: None (occurrence: None)
  Receive Date: 20050120
  Receipt Date: 20050120
  Transmission Date: 20050727
  Serious: Yes (Death, Hospitalization)
  Sender: FDA-Public Use
  Company Number: None

PATIENT
  Age: 63 Year
  Sex: Female
  Weight: 59 kg

DRUGS (12)
  1. METHOTREXATE [Suspect]
     Indication: SPONDYLITIS
     Dosage: 15MG   WEEKLY   ORAL
     Route: 048
  2. AYGESTIN [Concomitant]
  3. ASPIRIN [Concomitant]
  4. PREMARIN [Concomitant]
  5. FOLIC ACID [Concomitant]
  6. NEURONTIN [Concomitant]
  7. PROTONIX [Concomitant]
  8. SKELAXIN [Concomitant]
  9. PERCOCET [Concomitant]
  10. ACTONEL [Concomitant]
  11. VERAPAMIL [Concomitant]
  12. OXAPROZIN [Concomitant]

REACTIONS (10)
  - ACUTE RESPIRATORY DISTRESS SYNDROME [None]
  - CARDIAC FAILURE CONGESTIVE [None]
  - CARDIO-RESPIRATORY ARREST [None]
  - CONVULSION [None]
  - DRUG TOXICITY [None]
  - INTERSTITIAL LUNG DISEASE [None]
  - PNEUMONIA [None]
  - PNEUMONITIS [None]
  - RENAL FAILURE ACUTE [None]
  - SEPTIC SHOCK [None]
